FAERS Safety Report 6864026-0 (Version None)
Quarter: 2010Q3

REPORT INFORMATION
  Report Type: 
  Country: None (occurrence: None)
  Receive Date: 20100721
  Receipt Date: 20080430
  Transmission Date: 20110219
  Serious: Yes (Other)
  Sender: FDA-Public Use
  Company Number: US-PFIZER INC-2008022966

PATIENT
  Sex: Female
  Weight: 66.7 kg

DRUGS (4)
  1. CHANTIX [Suspect]
     Indication: EX-TOBACCO USER
     Dates: start: 20071201, end: 20071221
  2. XANAX [Concomitant]
  3. XANAX [Concomitant]
     Dosage: 5/500
  4. LORTAB [Concomitant]
     Indication: PAIN
     Dosage: 5/500

REACTIONS (8)
  - ABNORMAL DREAMS [None]
  - AGITATION [None]
  - CHEST PAIN [None]
  - HYPERTENSION [None]
  - MOOD SWINGS [None]
  - NAUSEA [None]
  - PUPILLARY DISORDER [None]
  - TREMOR [None]
